FAERS Safety Report 4741441-2 (Version None)
Quarter: 2005Q3

REPORT INFORMATION
  Report Type: 
  Country: None (occurrence: None)
  Receive Date: 20050808
  Receipt Date: 20050727
  Transmission Date: 20060218
  Serious: Yes (Other)
  Sender: FDA-Public Use
  Company Number: 2005107960

PATIENT
  Sex: Female
  Weight: 62.5964 kg

DRUGS (4)
  1. CELEBREX [Suspect]
     Indication: OSTEOARTHRITIS
     Dosage: 400 MG (200 MG, 2 IN 1 D)
  2. TOPROL (METOPROLOL) [Concomitant]
  3. SYNTHROID [Concomitant]
  4. VITAMINS (VITAMINS) [Concomitant]

REACTIONS (1)
  - CARDIAC VALVE DISEASE [None]
